FAERS Safety Report 9513351 (Version 1)
Quarter: 2013Q1

REPORT INFORMATION
  Report Type: Spontaneous
  Country: US (occurrence: None)
  Receive Date: 20130305
  Receipt Date: 20130305
  Transmission Date: 20140127
  Serious: Yes (Hospitalization, Disabling, Other)
  Sender: FDA-Public Use
  Company Number: 163-21880-12101943

PATIENT
  Age: 70 Year
  Sex: Male
  Weight: 81.19 kg

DRUGS (9)
  1. REVLIMID (LENALIDOMIDE) (CAPSULES) [Suspect]
     Indication: PLASMA CELL MYELOMA
     Route: 048
     Dates: start: 20100526
  2. DEXAMETHASONE (DEXAMETHASONE) [Suspect]
     Indication: PRODUCT USED FOR UNKNOWN INDICATION
  3. ACTIGALL (URSODEOXYCHOLIC ACID) [Concomitant]
  4. BACTRIM [Concomitant]
  5. COZAAR (LOSARTAN POTASSIUM) [Concomitant]
  6. LYRICA (PREGABALIN) [Concomitant]
  7. PRILOSEC [Concomitant]
  8. TOPROL XL (METOPROLOL SUCCINATE) [Concomitant]
  9. VALTREX (VALACICLOVIR HYDROCHLORIDE) [Concomitant]

REACTIONS (1)
  - Spinal compression fracture [None]
